FAERS Safety Report 9143496 (Version 2)
Quarter: 2013Q2

REPORT INFORMATION
  Report Type: Spontaneous
  Country: CA (occurrence: CA)
  Receive Date: 20130306
  Receipt Date: 20130408
  Transmission Date: 20140414
  Serious: Yes (Other)
  Sender: FDA-Public Use
  Company Number: PHHY2013CA020777

PATIENT
  Age: 52 Year
  Sex: Male

DRUGS (2)
  1. GILENYA [Suspect]
     Indication: RELAPSING-REMITTING MULTIPLE SCLEROSIS
     Dosage: 0.5 MG, QD
     Route: 048
     Dates: start: 20130228
  2. IBUPROFEN [Concomitant]

REACTIONS (5)
  - Blood pressure decreased [Unknown]
  - Heart rate increased [Unknown]
  - Muscle spasms [Unknown]
  - Flushing [Unknown]
  - Pyrexia [Unknown]
